FAERS Safety Report 21768703 (Version 1)
Quarter: 2022Q4

REPORT INFORMATION
  Report Type: Spontaneous
  Country: US (occurrence: None)
  Receive Date: 20221222
  Receipt Date: 20221222
  Transmission Date: 20230113
  Serious: Yes (Hospitalization)
  Sender: FDA-Public Use
  Company Number: None

PATIENT
  Age: 82 Year
  Sex: Male
  Weight: 59.9 kg

DRUGS (1)
  1. POMALYST [Suspect]
     Active Substance: POMALIDOMIDE
     Indication: Plasma cell myeloma
     Dosage: 3MG DAILY X 21 DAYS ORAL?
     Route: 048
     Dates: start: 20221025, end: 20221217

REACTIONS (4)
  - Syncope [None]
  - Neck pain [None]
  - Pyrexia [None]
  - Therapy interrupted [None]

NARRATIVE: CASE EVENT DATE: 20221217
